FAERS Safety Report 10409322 (Version 6)
Quarter: 2015Q3

REPORT INFORMATION
  Report Type: Spontaneous
  Country: US (occurrence: US)
  Receive Date: 20140826
  Receipt Date: 20150930
  Transmission Date: 20151125
  Serious: Yes (Hospitalization, Disabling, Other)
  Sender: FDA-Public Use
  Company Number: US-009507513-1408USA010547

PATIENT
  Sex: Female

DRUGS (3)
  1. FOSAMAX [Suspect]
     Active Substance: ALENDRONATE SODIUM
     Indication: OSTEOPOROSIS
     Dosage: 10 MG, UNK
     Route: 048
     Dates: start: 19951208
  2. FOSAMAX [Suspect]
     Active Substance: ALENDRONATE SODIUM
     Dosage: 70 MG, UNK
     Route: 048
     Dates: start: 20060503, end: 2013
  3. ALENDRONATE SODIUM. [Suspect]
     Active Substance: ALENDRONATE SODIUM
     Indication: OSTEOPOROSIS
     Dosage: 70 MG, UNK
     Route: 048
     Dates: start: 20080212

REACTIONS (34)
  - Pelvic fracture [Unknown]
  - Bone disorder [Unknown]
  - Pulmonary hypertension [Unknown]
  - Hypertension [Unknown]
  - Cataract [Unknown]
  - Femur fracture [Unknown]
  - Femur fracture [Unknown]
  - Infectious colitis [Unknown]
  - Oral lichen planus [Unknown]
  - Rib fracture [Unknown]
  - Osteoarthritis [Unknown]
  - Mitral valve incompetence [Unknown]
  - Tricuspid valve incompetence [Unknown]
  - Spinal column stenosis [Unknown]
  - Back pain [Not Recovered/Not Resolved]
  - Chronic obstructive pulmonary disease [Unknown]
  - Medical device removal [Unknown]
  - Electrocardiogram change [Unknown]
  - Carpal tunnel syndrome [Unknown]
  - Wrist fracture [Unknown]
  - Muscle spasms [Unknown]
  - Drug ineffective [Unknown]
  - Oedema peripheral [Unknown]
  - Abdominal pain [Unknown]
  - Low turnover osteopathy [Unknown]
  - Intramedullary rod insertion [Unknown]
  - Sciatica [Unknown]
  - Emphysema [Unknown]
  - Diverticulum [Unknown]
  - Gastritis [Unknown]
  - Pubis fracture [Unknown]
  - Aortic arteriosclerosis [Unknown]
  - Arthropathy [Unknown]
  - Dyspnoea [Unknown]

NARRATIVE: CASE EVENT DATE: 2000
